FAERS Safety Report 4356491-8 (Version None)
Quarter: 2004Q2

REPORT INFORMATION
  Report Type: 
  Country: None (occurrence: None)
  Receive Date: 20040507
  Receipt Date: 20040406
  Transmission Date: 20050107
  Serious: Yes (Hospitalization)
  Sender: FDA-Public Use
  Company Number: BEI-004265

PATIENT
  Age: 70 Year
  Sex: Female

DRUGS (4)
  1. IOPAMIDOL [Suspect]
     Indication: ANGIOGRAM
     Dosage: SY
  2. IOPAMIDOL [Suspect]
     Indication: COMPUTERISED TOMOGRAM
     Dosage: SY
  3. IOPAMIDOL [Suspect]
     Indication: HEPATIC NEOPLASM MALIGNANT
     Dosage: SY
  4. HYDROCORTISONE [Concomitant]

REACTIONS (12)
  - ABDOMINAL PAIN [None]
  - CONDITION AGGRAVATED [None]
  - CONTRAST MEDIA REACTION [None]
  - CRYOGLOBULINAEMIA [None]
  - FATIGUE [None]
  - HAEMATURIA [None]
  - HAEMODIALYSIS [None]
  - MUSCULOSKELETAL STIFFNESS [None]
  - PROCEDURAL COMPLICATION [None]
  - PURPURA [None]
  - PYREXIA [None]
  - RENAL FAILURE [None]
